FAERS Safety Report 18767304 (Version 1)
Quarter: 2021Q1

REPORT INFORMATION
  Report Type: Spontaneous
  Country: US (occurrence: US)
  Receive Date: 20210120
  Receipt Date: 20210120
  Transmission Date: 20210419
  Serious: Yes (Death)
  Sender: FDA-Public Use
  Company Number: None

PATIENT
  Age: 83 Year
  Sex: Male

DRUGS (13)
  1. LEVOTHYROXINE. [Concomitant]
     Active Substance: LEVOTHYROXINE
  2. SODIUM BICARBONATE. [Concomitant]
     Active Substance: SODIUM BICARBONATE
  3. FINASTERIDE. [Concomitant]
     Active Substance: FINASTERIDE
  4. TACROLIMUS 0.5MG [Suspect]
     Active Substance: TACROLIMUS
  5. HYDROXYZINE [Concomitant]
     Active Substance: HYDROXYZINE HYDROCHLORIDE
  6. MYCOPHENOLATE MOFETIL 250MG [Suspect]
     Active Substance: MYCOPHENOLATE MOFETIL
  7. GLIPIZIDE. [Concomitant]
     Active Substance: GLIPIZIDE
  8. TRADJENTA [Concomitant]
     Active Substance: LINAGLIPTIN
  9. AMLODIPINE [Concomitant]
     Active Substance: AMLODIPINE BESYLATE
  10. VITAMIN D2 [Concomitant]
     Active Substance: ERGOCALCIFEROL
  11. TAMSULOSIN [Concomitant]
     Active Substance: TAMSULOSIN
  12. FUROSEMIDE. [Concomitant]
     Active Substance: FUROSEMIDE
  13. ERYTHROMYCIN OINTMENT [Concomitant]
     Active Substance: ERYTHROMYCIN

REACTIONS (1)
  - Death [None]

NARRATIVE: CASE EVENT DATE: 20210104
